FAERS Safety Report 8207992-3 (Version None)
Quarter: 2012Q1

REPORT INFORMATION
  Report Type: 
  Country: None (occurrence: None)
  Receive Date: 20120314
  Receipt Date: 20120308
  Transmission Date: 20120608
  Serious: Yes (Death, Life-Threatening, Hospitalization, Disabling)
  Sender: FDA-Public Use
  Company Number: PH-SANOFI-AVENTIS-2011SA075588

PATIENT
  Age: 68 Year
  Sex: Female
  Weight: 52.5 kg

DRUGS (9)
  1. VITAMIN K TAB [Concomitant]
     Dates: start: 20101107, end: 20101123
  2. OMEPRAZOLE [Concomitant]
     Dates: start: 20101102, end: 20101105
  3. CIPROFLOXACIN [Concomitant]
     Dates: start: 20101026, end: 20101102
  4. FLUCONAZOLE [Concomitant]
     Dates: start: 20101103, end: 20101122
  5. DOCETAXEL [Suspect]
     Dosage: FORM: VIAL
     Route: 042
     Dates: start: 20101026, end: 20101116
  6. MUCOSTA [Concomitant]
     Dates: start: 20101109, end: 20101111
  7. DOCETAXEL [Suspect]
     Dosage: FORM: VIAL
     Route: 042
     Dates: start: 20101026, end: 20101116
  8. TRASTUZUMAB [Suspect]
     Route: 042
     Dates: start: 20101026, end: 20101116
  9. TINZAPARIN [Concomitant]
     Dosage: DOSE:10000 UNIT(S)
     Dates: start: 20101105, end: 20101106

REACTIONS (6)
  - DUODENAL ULCER [None]
  - PNEUMONIA [None]
  - HEPATIC FAILURE [None]
  - GASTROINTESTINAL ULCER [None]
  - FEBRILE NEUTROPENIA [None]
  - NEUTROPENIA [None]
